FAERS Safety Report 10681043 (Version 1)
Quarter: 2014Q4

REPORT INFORMATION
  Report Type: Other
  Country: GB (occurrence: GB)
  Receive Date: 20141229
  Receipt Date: 20141229
  Transmission Date: 20150529
  Serious: Yes (Disabling, Other)
  Sender: FDA-Public Use
  Company Number: GB-MYLANLABS-2014M1014719

PATIENT

DRUGS (14)
  1. CLARITHROMYCIN. [Concomitant]
     Active Substance: CLARITHROMYCIN
  2. VITAMIN C [Concomitant]
     Active Substance: ASCORBIC ACID
     Dosage: OCCASIONAL
  3. RIFAMPICIN [Concomitant]
     Active Substance: RIFAMPIN
  4. ARANESP [Concomitant]
     Active Substance: DARBEPOETIN ALFA
  5. OMEPRAZOLE. [Suspect]
     Active Substance: OMEPRAZOLE
     Indication: DUODENAL ULCER PERFORATION
     Dosage: 80 MG, QD
     Route: 048
     Dates: end: 20141101
  6. OMEPRAZOLE. [Suspect]
     Active Substance: OMEPRAZOLE
     Dosage: 40 MG, QD
     Route: 048
     Dates: start: 20141101
  7. PREDNISOLONE. [Concomitant]
     Active Substance: PREDNISOLONE
  8. CALCIUM ACETATE. [Concomitant]
     Active Substance: CALCIUM ACETATE
  9. CLINDAMYCIN [Concomitant]
     Active Substance: CLINDAMYCIN\CLINDAMYCIN PHOSPHATE
  10. FLUCLOXACILLIN [Concomitant]
     Active Substance: FLUCLOXACILLIN
  11. VITAMIN B COMPLEX [Concomitant]
     Active Substance: CYANOCOBALAMIN\DEXPANTHENOL\NIACINAMIDE\PYRIDOXINE HYDROCHLORIDE\RIBOFLAVIN 5^-PHOSPHATE SODIUM\THIAMINE HYDROCHLORIDE\VITAMIN B COMPLEX
     Dosage: OCCASIONAL
  12. ZINC GLUCONATE [Concomitant]
     Active Substance: ZINC GLUCONATE
     Dosage: OCCASIONAL
  13. CALCIUM ACETATE W/MAGNESIUM CARBONATE [Concomitant]
     Dosage: 1 DF, QD
  14. MULTIVITAMIN                       /00097801/ [Concomitant]
     Active Substance: VITAMINS

REACTIONS (6)
  - Malaise [Not Recovered/Not Resolved]
  - Peripheral coldness [Not Recovered/Not Resolved]
  - Headache [Not Recovered/Not Resolved]
  - Hypoaesthesia [Not Recovered/Not Resolved]
  - Hyperhidrosis [Not Recovered/Not Resolved]
  - Arthralgia [Not Recovered/Not Resolved]

NARRATIVE: CASE EVENT DATE: 20141115
